FAERS Safety Report 25968164 (Version 1)
Quarter: 2025Q4

REPORT INFORMATION
  Report Type: Spontaneous
  Country: CN (occurrence: CN)
  Receive Date: 20251028
  Receipt Date: 20251028
  Transmission Date: 20260118
  Serious: Yes (Life-Threatening, Hospitalization)
  Sender: MACLEODS
  Company Number: CN-MLMSERVICE-20251010-PI672374-00201-1

PATIENT

DRUGS (4)
  1. LIDOCAINE [Suspect]
     Active Substance: LIDOCAINE
     Indication: Sedation
     Route: 065
  2. PROPOFOL [Suspect]
     Active Substance: PROPOFOL
     Indication: Sedation
     Route: 065
  3. PROPOFOL [Suspect]
     Active Substance: PROPOFOL
     Dosage: BEFORE COLONOSCOPY
     Route: 042
  4. BUTORPHANOL [Suspect]
     Active Substance: BUTORPHANOL
     Indication: Sedation
     Route: 065

REACTIONS (2)
  - Bezold-Jarisch reflex [Recovered/Resolved]
  - Cardiac arrest [Recovered/Resolved]
